FAERS Safety Report 8593570 (Version 3)
Quarter: 2012Q4

REPORT INFORMATION
  Report Type: 
  Country: US (occurrence: US)
  Receive Date: 20120604
  Receipt Date: 20121018
  Transmission Date: 20130627
  Serious: Yes (Hospitalization, Other)
  Sender: FDA-Public Use
  Company Number: US-BAYER-2012-053718

PATIENT
  Age: 34 Year
  Sex: Female
  Weight: 161.45 kg

DRUGS (15)
  1. YAZ [Suspect]
     Dosage: UNK
     Dates: start: 2001, end: 2008
  2. YASMIN [Suspect]
     Dosage: UNK
     Dates: start: 2001, end: 2008
  3. FERROUS SULFATE [Concomitant]
     Indication: BLOOD COUNT ABNORMAL
     Dosage: UNK
     Dates: start: 2000, end: 2012
  4. HYDROCHLOROTHIAZIDE [Concomitant]
     Indication: FLUID RETENTION
     Dosage: 50 mg, UNK
     Dates: start: 2000, end: 2012
  5. HYDROCHLOROTHIAZIDE [Concomitant]
     Indication: SWELLING
  6. BLOOD PRESSURE MEDICATION [Concomitant]
     Dosage: UNK
     Dates: start: 2000, end: 2011
  7. NSAID^S [Concomitant]
     Dosage: PRN
     Dates: start: 2000, end: 2012
  8. ULTRAM [Concomitant]
  9. NOVOLIN N [Concomitant]
     Indication: BLOOD GLUCOSE DECREASED
     Dosage: UNK
     Dates: start: 2000, end: 2012
  10. NOVOLIN R [Concomitant]
     Indication: BLOOD GLUCOSE DECREASED
     Dosage: UNK
     Dates: start: 2000, end: 2012
  11. NYSTATIN [Concomitant]
     Dosage: UNK
     Dates: start: 201101
  12. MECLIZINE [Concomitant]
     Dosage: 25 mg, UNK
     Dates: start: 201102
  13. NYSTATIN/TRIAMCIN CREAM [Concomitant]
     Dosage: UNK
     Dates: start: 201102
  14. ASPIRIN [Concomitant]
  15. CIPRO [Concomitant]

REACTIONS (10)
  - Deep vein thrombosis [None]
  - Pain [None]
  - Injury [None]
  - Thrombophlebitis superficial [None]
  - Pulmonary embolism [Recovered/Resolved]
  - General physical health deterioration [Recovered/Resolved]
  - Emotional distress [None]
  - Pain [None]
  - Anxiety [None]
  - Anhedonia [None]
